FAERS Safety Report 14731663 (Version 2)
Quarter: 2018Q2

REPORT INFORMATION
  Report Type: Spontaneous
  Country: US (occurrence: US)
  Receive Date: 20180407
  Receipt Date: 20180517
  Transmission Date: 20180711
  Serious: Yes (Hospitalization, Other)
  Sender: FDA-Public Use
  Company Number: US-TEVA-2018-US-877410

PATIENT
  Sex: Female

DRUGS (4)
  1. LISINOPRIL. [Suspect]
     Active Substance: LISINOPRIL
     Indication: HYPERTENSION
     Route: 065
     Dates: start: 2011, end: 20180327
  2. NORVASC [Concomitant]
     Active Substance: AMLODIPINE BESYLATE
  3. TRAZODONE [Concomitant]
     Active Substance: TRAZODONE HYDROCHLORIDE
  4. PAXIL [Concomitant]
     Active Substance: PAROXETINE HYDROCHLORIDE

REACTIONS (3)
  - Angioedema [Recovered/Resolved]
  - Swelling face [Unknown]
  - Mouth swelling [Unknown]

NARRATIVE: CASE EVENT DATE: 20180327
